FAERS Safety Report 15103746 (Version 1)
Quarter: 2018Q3

REPORT INFORMATION
  Report Type: Spontaneous
  Country: FR (occurrence: FR)
  Receive Date: 20180703
  Receipt Date: 20180703
  Transmission Date: 20181010
  Serious: Yes (Hospitalization)
  Sender: FDA-Public Use
  Company Number: FR-LINDE-FR-LHC-2018156

PATIENT
  Age: 17 Year
  Sex: Female
  Weight: 50 kg

DRUGS (2)
  1. OXYGEN (GENERIC) [Suspect]
     Active Substance: OXYGEN
     Indication: PAIN
     Route: 045
     Dates: start: 20180107, end: 20180107
  2. NITROUS OXIDE. [Suspect]
     Active Substance: NITROUS OXIDE
     Indication: PAIN
     Route: 045
     Dates: start: 20180107, end: 20180107

REACTIONS (3)
  - Paraesthesia [Recovered/Resolved]
  - Tremor [Recovered/Resolved]
  - Hypovitaminosis [Recovered/Resolved]

NARRATIVE: CASE EVENT DATE: 20180208
